FAERS Safety Report 9888947 (Version 2)
Quarter: 2014Q1

REPORT INFORMATION
  Report Type: Spontaneous
  Country: NL (occurrence: NL)
  Receive Date: 20140211
  Receipt Date: 20140212
  Transmission Date: 20141002
  Serious: Yes (Life-Threatening)
  Sender: FDA-Public Use
  Company Number: NL-GLAXOSMITHKLINE-B0967402A

PATIENT
  Age: 68 Year
  Sex: Male
  Weight: 80 kg

DRUGS (7)
  1. ZANTAC [Suspect]
     Indication: HYPERTENSION
     Dosage: 150MG TWICE PER DAY
     Route: 048
     Dates: start: 20131001, end: 20140101
  2. ASCAL [Concomitant]
  3. METFORMIN [Concomitant]
  4. AMLODIPINE [Concomitant]
  5. FLUVASTATIN [Concomitant]
  6. DIPYRIDAMOLE [Concomitant]
  7. FUMARIC ACID [Concomitant]

REACTIONS (1)
  - Pneumonia [Recovered/Resolved with Sequelae]
